FAERS Safety Report 7056335-X (Version None)
Quarter: 2010Q4

REPORT INFORMATION
  Report Type: 
  Country: None (occurrence: None)
  Receive Date: 20101021
  Receipt Date: 20101013
  Transmission Date: 20110411
  Serious: Yes (Death, Hospitalization)
  Sender: FDA-Public Use
  Company Number: US-AMGEN GMBH-KDC441010

PATIENT

DRUGS (3)
  1. PANITUMUMAB [Suspect]
     Indication: PANCREATIC CARCINOMA
     Dosage: 394 MG, UNK
     Dates: start: 20100813, end: 20100910
  2. GEMCITABINE HCL [Suspect]
     Dosage: 2260 MG, UNK
     Dates: start: 20100813, end: 20100910
  3. TARCEVA                            /01611401/ [Suspect]
     Dosage: 1200 MG, UNK
     Route: 048
     Dates: start: 20100813, end: 20100921

REACTIONS (4)
  - BLOOD ALKALINE PHOSPHATASE [None]
  - DISEASE PROGRESSION [None]
  - DYSPNOEA [None]
  - HYPOKALAEMIA [None]
